FAERS Safety Report 4913272-1 (Version None)
Quarter: 2006Q1

REPORT INFORMATION
  Report Type: 
  Country: None (occurrence: None)
  Receive Date: 20060215
  Receipt Date: 20051114
  Transmission Date: 20060701
  Serious: Yes (Other)
  Sender: FDA-Public Use
  Company Number: US-MERCK-0511USA02596

PATIENT
  Age: 32 Year
  Sex: Female
  Weight: 55 kg

DRUGS (4)
  1. VIOXX [Suspect]
     Indication: ARTHRITIS
     Route: 048
  2. PERCOCET [Concomitant]
     Route: 065
  3. TYLENOL W/ CODEINE NO. 4 [Concomitant]
     Route: 065
  4. MORPHINE [Concomitant]
     Route: 065

REACTIONS (8)
  - ARTHRALGIA [None]
  - BONE PAIN [None]
  - CHEST PAIN [None]
  - HAEMORRHAGE [None]
  - INTESTINAL FUNCTIONAL DISORDER [None]
  - PAIN [None]
  - PELVIC HAEMORRHAGE [None]
  - PRESCRIBED OVERDOSE [None]
